FAERS Safety Report 25873114 (Version 1)
Quarter: 2025Q4

REPORT INFORMATION
  Report Type: Spontaneous
  Country: US (occurrence: None)
  Receive Date: 20251002
  Receipt Date: 20251002
  Transmission Date: 20260118
  Serious: Yes (Hospitalization)
  Sender: FDA-CTU
  Company Number: None

PATIENT
  Age: 56 Year
  Sex: Female
  Weight: 53.1 kg

DRUGS (3)
  1. SPRYCEL [Suspect]
     Active Substance: DASATINIB
  2. PREDNISONE [Suspect]
     Active Substance: PREDNISONE
     Dates: end: 20250916
  3. VINCRISTINE SULFATE [Suspect]
     Active Substance: VINCRISTINE SULFATE

REACTIONS (5)
  - Pyrexia [None]
  - Headache [None]
  - Hepatic steatosis [None]
  - Mucosal inflammation [None]
  - Neutrophil count decreased [None]

NARRATIVE: CASE EVENT DATE: 20250918
